FAERS Safety Report 5287213-4 (Version None)
Quarter: 2007Q1

REPORT INFORMATION
  Report Type: 
  Country: None (occurrence: None)
  Receive Date: 20070329
  Receipt Date: 20070323
  Transmission Date: 20070707
  Serious: No
  Sender: FDA-Public Use
  Company Number: 2007-01577

PATIENT
  Age: 68 Year
  Sex: Female

DRUGS (2)
  1. COLCHICINE (WATSON LABORATORIES) (COLCHICINE) TABLET, 0.6MG [Suspect]
     Indication: FAMILIAL MEDITERRANEAN FEVER
     Dosage: 1 MG, DAILY
     Dates: start: 19920101
  2. INDAPAMIDE [Concomitant]

REACTIONS (2)
  - MUCORMYCOSIS [None]
  - PULMONARY MYCOSIS [None]
